FAERS Safety Report 12121303 (Version 1)
Quarter: 2016Q1

REPORT INFORMATION
  Report Type: Spontaneous
  Country: US (occurrence: US)
  Receive Date: 20160226
  Receipt Date: 20160226
  Transmission Date: 20160526
  Serious: No
  Sender: FDA-Public Use
  Company Number: US-ALLERGAN-1420641US

PATIENT
  Age: 72 Year
  Sex: Male

DRUGS (3)
  1. REFRESH OPTIVE [Suspect]
     Active Substance: CARBOXYMETHYLCELLULOSE SODIUM\GLYCERIN
     Dosage: 2 GTT, BID
     Route: 047
     Dates: start: 2014, end: 2014
  2. HYPO TEARS [Concomitant]
     Indication: PRODUCT USED FOR UNKNOWN INDICATION
  3. REFRESH OPTIVE [Suspect]
     Active Substance: CARBOXYMETHYLCELLULOSE SODIUM\GLYCERIN
     Indication: PRODUCT USED FOR UNKNOWN INDICATION
     Dosage: 2 GTT, BID
     Route: 047
     Dates: start: 20140915, end: 20140919

REACTIONS (2)
  - Eyelid irritation [Recovering/Resolving]
  - Eyelids pruritus [Recovering/Resolving]
